FAERS Safety Report 13930052 (Version 3)
Quarter: 2017Q4

REPORT INFORMATION
  Report Type: Spontaneous
  Country: DE (occurrence: DE)
  Receive Date: 20170901
  Receipt Date: 20171013
  Transmission Date: 20180320
  Serious: Yes (Other)
  Sender: FDA-Public Use
  Company Number: DE-TEVA-800694GER

PATIENT
  Age: 37 Year
  Sex: Female
  Weight: 99 kg

DRUGS (20)
  1. TAVEGYL [Concomitant]
     Active Substance: CLEMASTINE FUMARATE
     Indication: BREAST CANCER FEMALE
     Route: 042
  2. ONDANSETRON [Concomitant]
     Active Substance: ONDANSETRON
     Indication: BREAST CANCER FEMALE
     Route: 042
  3. DEXAMETHASON [Concomitant]
     Active Substance: DEXAMETHASONE
     Indication: BREAST CANCER FEMALE
     Route: 042
  4. TAVEGYL [Concomitant]
     Active Substance: CLEMASTINE FUMARATE
     Indication: METASTASES TO LYMPH NODES
  5. HERCEPTIN [Concomitant]
     Active Substance: TRASTUZUMAB
     Indication: METASTASES TO LYMPH NODES
  6. PERTUZUMAB. [Concomitant]
     Active Substance: PERTUZUMAB
     Indication: BREAST CANCER FEMALE
     Route: 042
     Dates: start: 20170818, end: 20170818
  7. CARBOPLATIN-ACTAVIS 10 MG/ML CONCENTRATE FOR SOLUTION FOR INFUSION [Suspect]
     Active Substance: CARBOPLATIN
     Indication: BREAST CANCER FEMALE
     Dosage: 850 MILLIGRAM DAILY; REACTION AT 3RD ADMINISTRATION OF BATCH 6NK5161 ON 18-AUG-2017
     Route: 042
     Dates: start: 20170505, end: 20170818
  8. NACL 0.9% [Concomitant]
     Active Substance: SODIUM CHLORIDE
     Indication: BREAST CANCER FEMALE
     Route: 042
     Dates: start: 20170818, end: 20170818
  9. NACL 0.9% [Concomitant]
     Active Substance: SODIUM CHLORIDE
     Indication: METASTASES TO LYMPH NODES
  10. DOCETAXAL [Concomitant]
     Indication: BREAST CANCER FEMALE
     Route: 042
     Dates: start: 20170818, end: 20170818
  11. DOCETAXAL [Concomitant]
     Indication: METASTASES TO LYMPH NODES
  12. PERTUZUMAB. [Concomitant]
     Active Substance: PERTUZUMAB
     Indication: METASTASES TO LYMPH NODES
  13. LONQUEX [Concomitant]
     Active Substance: LIPEGFILGRASTIM
     Indication: METASTASES TO LYMPH NODES
  14. DEXAMETHASON [Concomitant]
     Active Substance: DEXAMETHASONE
     Indication: METASTASES TO LYMPH NODES
  15. APREPITANT. [Concomitant]
     Active Substance: APREPITANT
     Indication: METASTASES TO LYMPH NODES
  16. ONDANSETRON [Concomitant]
     Active Substance: ONDANSETRON
     Indication: METASTASES TO LYMPH NODES
  17. LONQUEX [Concomitant]
     Active Substance: LIPEGFILGRASTIM
     Indication: BREAST CANCER FEMALE
     Route: 042
     Dates: start: 20170818, end: 20170818
  18. APREPITANT. [Concomitant]
     Active Substance: APREPITANT
     Indication: BREAST CANCER FEMALE
     Route: 048
     Dates: start: 20170818, end: 20170818
  19. CARBOPLATIN-ACTAVIS 10 MG/ML CONCENTRATE FOR SOLUTION FOR INFUSION [Suspect]
     Active Substance: CARBOPLATIN
     Indication: METASTASES TO LYMPH NODES
  20. HERCEPTIN [Concomitant]
     Active Substance: TRASTUZUMAB
     Indication: BREAST CANCER FEMALE
     Route: 042
     Dates: start: 20170818, end: 20170818

REACTIONS (3)
  - Chest discomfort [Recovered/Resolved]
  - Hot flush [Recovered/Resolved]
  - Throat tightness [Recovered/Resolved]

NARRATIVE: CASE EVENT DATE: 20170818
